FAERS Safety Report 4590872-2 (Version None)
Quarter: 2005Q1

REPORT INFORMATION
  Report Type: 
  Country: None (occurrence: None)
  Receive Date: 20050222
  Receipt Date: 20050222
  Transmission Date: 20050727
  Serious: Yes (Death)
  Sender: FDA-Public Use
  Company Number: None

PATIENT
  Sex: Female
  Weight: 151.3 kg

DRUGS (1)
  1. DOCETAXEL [Suspect]
     Dosage: 36 MG/M2 IV OVER 1 HOUR ON DAYS 1,8 AND 15 EVERY 28 DAYS
     Route: 042
     Dates: start: 20041130

REACTIONS (16)
  - ABDOMINAL ABSCESS [None]
  - ACUTE RESPIRATORY DISTRESS SYNDROME [None]
  - ASPIRATION [None]
  - ENDOMETRIAL CANCER [None]
  - FLATULENCE [None]
  - GASTROINTESTINAL DISORDER [None]
  - GASTROINTESTINAL PERFORATION [None]
  - HYPERTENSION [None]
  - HYPOXIA [None]
  - NECROSIS [None]
  - PELVIC MASS [None]
  - PNEUMOMEDIASTINUM [None]
  - PNEUMONIA [None]
  - SEPSIS [None]
  - SMALL INTESTINAL OBSTRUCTION [None]
  - STAPHYLOCOCCAL INFECTION [None]
